FAERS Safety Report 9742944 (Version 1)
Quarter: 2013Q4

REPORT INFORMATION
  Report Type: Spontaneous
  Country: US (occurrence: US)
  Receive Date: 20131210
  Receipt Date: 20131210
  Transmission Date: 20140711
  Serious: No
  Sender: FDA-Public Use
  Company Number: US-TEVA-399543USA

PATIENT
  Sex: Female

DRUGS (1)
  1. BUDESONIDE [Suspect]
     Dosage: 0.5 MG/2 ML; INHALATION

REACTIONS (6)
  - Feeling abnormal [Unknown]
  - Throat irritation [Unknown]
  - Lung disorder [Unknown]
  - Palpitations [Unknown]
  - Nasal dryness [Unknown]
  - Dry mouth [Unknown]
